FAERS Safety Report 7824543-3 (Version None)
Quarter: 2011Q4

REPORT INFORMATION
  Report Type: 
  Country: None (occurrence: None)
  Receive Date: 20111019
  Receipt Date: 20111005
  Transmission Date: 20120403
  Serious: Yes (Hospitalization, Other)
  Sender: FDA-Public Use
  Company Number: CA-ELI_LILLY_AND_COMPANY-CA201110001028

PATIENT
  Sex: Male

DRUGS (4)
  1. ZYPREXA [Suspect]
     Dosage: 25 MG, EACH EVENING
  2. ZYPREXA [Suspect]
     Indication: SCHIZOPHRENIA
     Dosage: 10 MG, EACH EVENING
  3. ZYPREXA [Suspect]
     Dosage: 20 MG, QD
     Dates: start: 20050517
  4. SERAX [Concomitant]

REACTIONS (13)
  - HYPERTENSION [None]
  - CARDIOMEGALY [None]
  - HAEMATURIA [None]
  - HEPATIC STEATOSIS [None]
  - RHABDOMYOLYSIS [None]
  - SPLENOMEGALY [None]
  - WEIGHT INCREASED [None]
  - OVERDOSE [None]
  - RENAL FAILURE [None]
  - PLEURAL EFFUSION [None]
  - BRONCHOPNEUMONIA [None]
  - HEPATOMEGALY [None]
  - MITRAL VALVE INCOMPETENCE [None]
